FAERS Safety Report 6265916-2 (Version None)
Quarter: 2009Q3

REPORT INFORMATION
  Report Type: 
  Country: None (occurrence: None)
  Receive Date: 20090709
  Receipt Date: 20090709
  Transmission Date: 20100115
  Serious: Yes (Hospitalization)
  Sender: FDA-Public Use
  Company Number: None

PATIENT
  Age: 85 Year
  Sex: Female
  Weight: 51.8 kg

DRUGS (9)
  1. WARFARIN SODIUM [Suspect]
     Indication: ATRIAL FIBRILLATION
     Dosage: 3MG DAILY PO CHRONIC
     Route: 048
  2. ASPIRIN [Suspect]
     Indication: ATRIAL FIBRILLATION
     Dosage: 81MG DAILY PO CHRONIC
     Route: 048
  3. DARVOCET [Concomitant]
  4. FLECAINIDE ACETATE [Concomitant]
  5. LOPID [Concomitant]
  6. XALATAN [Concomitant]
  7. LORAZEPAM [Concomitant]
  8. METOPROLOL TARTRATE [Concomitant]
  9. TIMOPTIC [Concomitant]

REACTIONS (4)
  - FALL [None]
  - HEAD INJURY [None]
  - SUBARACHNOID HAEMORRHAGE [None]
  - TINNITUS [None]
